FAERS Safety Report 5216202-0 (Version None)
Quarter: 2006Q4

REPORT INFORMATION
  Report Type: 
  Country: None (occurrence: None)
  Receive Date: 20061122
  Receipt Date: 20060906
  Transmission Date: 20070319
  Serious: Yes (Other)
  Sender: FDA-Public Use
  Company Number: 2006107599

PATIENT
  Age: 56 Year
  Sex: Male
  Weight: 86.1834 kg

DRUGS (4)
  1. LIPITOR [Suspect]
     Indication: BLOOD CHOLESTEROL INCREASED
     Dosage: 10 MG (10 MG, 1 IN 1 D)
     Dates: start: 20060824, end: 20060824
  2. OMEGA 3 (FISH OIL) [Concomitant]
  3. MONTELUKAST SODIUM [Concomitant]
  4. ADVIL [Concomitant]

REACTIONS (3)
  - BLOOD CREATINE PHOSPHOKINASE [None]
  - MUSCULAR WEAKNESS [None]
  - PAIN IN EXTREMITY [None]
